FAERS Safety Report 12982822 (Version 1)
Quarter: 2016Q4

REPORT INFORMATION
  Report Type: Spontaneous
  Country: ZA (occurrence: ZA)
  Receive Date: 20161129
  Receipt Date: 20161129
  Transmission Date: 20170207
  Serious: Yes (Death, Hospitalization)
  Sender: FDA-Public Use
  Company Number: ZA-PFIZER INC-2016550943

PATIENT
  Sex: Male

DRUGS (4)
  1. MERONEM [Concomitant]
     Active Substance: MEROPENEM
     Dosage: UNK
     Dates: start: 20161003
  2. TYGACIL [Suspect]
     Active Substance: TIGECYCLINE
     Dosage: 100MG LOAD / 50MG BD (2X/DAY)
     Dates: start: 20161003
  3. RIFAFOUR [Concomitant]
     Active Substance: ETHAMBUTOL HYDROCHLORIDE\ISONIAZID\PYRAZINAMIDE\RIFAMYCIN
     Dosage: UNK
     Dates: start: 20161003
  4. CANCIDAS [Concomitant]
     Active Substance: CASPOFUNGIN ACETATE
     Dosage: UNK
     Dates: start: 20161003

REACTIONS (5)
  - Systemic inflammatory response syndrome [Fatal]
  - Hypoventilation [Fatal]
  - Hepatic failure [Fatal]
  - Sepsis [Fatal]
  - Respiratory failure [Fatal]
